FAERS Safety Report 14111072 (Version 1)
Quarter: 2017Q4

REPORT INFORMATION
  Report Type: Spontaneous
  Country: ZA (occurrence: ZA)
  Receive Date: 20171020
  Receipt Date: 20171020
  Transmission Date: 20180321
  Serious: Yes (Death)
  Sender: FDA-Public Use
  Company Number: ZA-MYLANLABS-2017M1065131

PATIENT
  Age: 74 Year
  Sex: Male

DRUGS (2)
  1. CARDUGEN 4MG [Suspect]
     Active Substance: DOXAZOSIN MESYLATE
     Indication: PRODUCT USED FOR UNKNOWN INDICATION
     Dosage: 4 MG, UNK
     Route: 048
  2. CARLOC [Suspect]
     Active Substance: CARVEDILOL
     Indication: HYPERTENSION
     Dosage: 12.5 MG, UNK
     Route: 048

REACTIONS (2)
  - Cardiac disorder [Fatal]
  - Renal disorder [Fatal]
